FAERS Safety Report 5947134-8 (Version None)
Quarter: 2008Q4

REPORT INFORMATION
  Report Type: 
  Country: None (occurrence: None)
  Receive Date: 20081106
  Receipt Date: 20081102
  Transmission Date: 20090506
  Serious: Yes (Other)
  Sender: FDA-Public Use
  Company Number: 036197

PATIENT
  Age: 20 Year
  Sex: Female
  Weight: 54.4 kg

DRUGS (3)
  1. PLAN B [Suspect]
     Indication: CONTRACEPTION
     Dosage: 1 TABLET, ORAL; 1 TABLET, ORAL; 1 TABLET, ORAL
     Route: 048
     Dates: start: 20080601, end: 20080601
  2. PLAN B [Suspect]
     Indication: CONTRACEPTION
     Dosage: 1 TABLET, ORAL; 1 TABLET, ORAL; 1 TABLET, ORAL
     Route: 048
     Dates: start: 20080906, end: 20080907
  3. PLAN B [Suspect]
     Indication: CONTRACEPTION
     Dosage: 1 TABLET, ORAL; 1 TABLET, ORAL; 1 TABLET, ORAL
     Route: 048
     Dates: start: 20080928, end: 20080929

REACTIONS (4)
  - ABORTION SPONTANEOUS [None]
  - DRUG EXPOSURE DURING PREGNANCY [None]
  - GENITAL HAEMORRHAGE [None]
  - MENSTRUATION IRREGULAR [None]
